FAERS Safety Report 4999472-3 (Version None)
Quarter: 2006Q2

REPORT INFORMATION
  Report Type: 
  Country: None (occurrence: None)
  Receive Date: 20060509
  Receipt Date: 20060509
  Transmission Date: 20061013
  Serious: Yes (Hospitalization)
  Sender: FDA-Public Use
  Company Number: None

PATIENT
  Age: 22 Year
  Sex: Male
  Weight: 43 kg

DRUGS (15)
  1. TOBRAMYCIN [Suspect]
     Indication: PSEUDOMONAS INFECTION
     Dosage: 430 MG IV QD
     Route: 042
     Dates: start: 20051024, end: 20051109
  2. AZITHROMYCIN [Concomitant]
  3. CEFEPIME [Concomitant]
  4. FEXOFENADINE [Concomitant]
  5. ESOMEPRAZOLE [Concomitant]
  6. METOCLOPRAMIDE [Concomitant]
  7. LACTULOSE [Concomitant]
  8. ALBUTEROL SULFATE AUTOHALER [Concomitant]
  9. PULMOZYME [Concomitant]
  10. TIOTROPIUM [Concomitant]
  11. ZOLPIDEM TARTRATE [Concomitant]
  12. PANCRELIPASE [Concomitant]
  13. OXYCODONE AND ACETAMINOPHEN [Concomitant]
  14. FLUTICASONE/SALMETEROL [Concomitant]
  15. SULFAMETHOXAZOLE + TRIMETHOPRIM [Concomitant]

REACTIONS (7)
  - BACK PAIN [None]
  - BLOOD CREATININE INCREASED [None]
  - DIALYSIS [None]
  - DIZZINESS [None]
  - NAUSEA [None]
  - URINE OUTPUT DECREASED [None]
  - VOMITING [None]
